FAERS Safety Report 13110198 (Version 1)
Quarter: 2017Q1

REPORT INFORMATION
  Report Type: Spontaneous
  Country: US (occurrence: US)
  Receive Date: 20170112
  Receipt Date: 20170112
  Transmission Date: 20170428
  Serious: No
  Sender: FDA-Public Use
  Company Number: US-ROCHE-GNE307639

PATIENT
  Age: 69 Year
  Sex: Female
  Weight: 73.08 kg

DRUGS (1)
  1. CATHFLO ACTIVASE [Suspect]
     Active Substance: ALTEPLASE
     Indication: THROMBECTOMY
     Dosage: UNK
     Route: 042
     Dates: start: 20101004

REACTIONS (2)
  - Pyrexia [None]
  - Blood pressure decreased [Unknown]

NARRATIVE: CASE EVENT DATE: 20101005
